APPROVED DRUG PRODUCT: JUXTAPID
Active Ingredient: LOMITAPIDE MESYLATE
Strength: EQ 40MG BASE
Dosage Form/Route: CAPSULE;ORAL
Application: N203858 | Product #005
Applicant: CHIESI FARMACEUTICI SPA
Approved: Apr 23, 2015 | RLD: Yes | RS: No | Type: DISCN

PATENTS:
Patent 7932268 | Expires: Aug 19, 2027